FAERS Safety Report 17670974 (Version 2)
Quarter: 2020Q4

REPORT INFORMATION
  Report Type: Report from Study
  Country: US (occurrence: US)
  Receive Date: 20200415
  Receipt Date: 20201228
  Transmission Date: 20210113
  Serious: No
  Sender: FDA-Public Use
  Company Number: NVSC2020US100811

PATIENT
  Sex: Female

DRUGS (1)
  1. AFINITOR [Suspect]
     Active Substance: EVEROLIMUS
     Indication: ANGIOMYOLIPOMA
     Dosage: 2.5 MG, QD (ONCE DAILY)
     Route: 048
     Dates: start: 20140419

REACTIONS (2)
  - Wrist fracture [Recovered/Resolved]
  - Sinusitis [Not Recovered/Not Resolved]
